FAERS Safety Report 15271235 (Version 1)
Quarter: 2018Q3

REPORT INFORMATION
  Report Type: Spontaneous
  Country: US (occurrence: US)
  Receive Date: 20180727
  Receipt Date: 20180727
  Transmission Date: 20181010
  Serious: Yes (Hospitalization)
  Sender: FDA-Public Use
  Company Number: None

PATIENT
  Age: 67 Year
  Sex: Female

DRUGS (9)
  1. SERTRALINE [Concomitant]
     Active Substance: SERTRALINE HYDROCHLORIDE
  2. QUINAPRIL. [Concomitant]
     Active Substance: QUINAPRIL
  3. WELCHOL 625MG [Concomitant]
  4. HUMIRA [Suspect]
     Active Substance: ADALIMUMAB
     Indication: CROHN^S DISEASE
     Dosage: ?          OTHER FREQUENCY:EVERY OTHER WEEK;?
     Route: 058
     Dates: start: 20160212
  5. ACCUPRIL 10MG [Concomitant]
  6. CYANOCOBALAMIN 1000MCG [Concomitant]
  7. LEXAPRO [Concomitant]
     Active Substance: ESCITALOPRAM OXALATE
  8. NASONEX 50MCG SPRAY [Concomitant]
  9. SYNTHROID 137MCG [Concomitant]

REACTIONS (1)
  - Crohn^s disease [None]

NARRATIVE: CASE EVENT DATE: 20180702
